FAERS Safety Report 8119856-4 (Version None)
Quarter: 2012Q1

REPORT INFORMATION
  Report Type: 
  Country: None (occurrence: None)
  Receive Date: 20120207
  Receipt Date: 20120201
  Transmission Date: 20120608
  Serious: Yes (Death, Hospitalization)
  Sender: FDA-Public Use
  Company Number: IT-BRISTOL-MYERS SQUIBB COMPANY-16378689

PATIENT
  Age: 81 Year
  Sex: Male

DRUGS (9)
  1. ALLOPURINOL [Concomitant]
     Dates: start: 20070101, end: 20120102
  2. METOPROLOL TARTRATE [Concomitant]
     Dates: start: 20111101
  3. FUROSEMIDE [Concomitant]
  4. COUMADIN [Suspect]
     Indication: ATRIAL FIBRILLATION
     Dosage: 1 DOSAGE FORM = 1 UNIT  INTERRUPTED ON 02JAN12
     Dates: start: 20111101
  5. HUMALOG [Concomitant]
  6. TICLOPIDINE HCL [Concomitant]
     Dosage: 1DF:2UNIT
     Dates: start: 20070101, end: 20120102
  7. PANTOPRAZOLE [Concomitant]
  8. LANTUS [Concomitant]
  9. ARANESP [Concomitant]

REACTIONS (5)
  - DEATH [None]
  - INTERNATIONAL NORMALISED RATIO INCREASED [None]
  - GENERAL PHYSICAL CONDITION ABNORMAL [None]
  - CIRCULATORY COLLAPSE [None]
  - SKIN ULCER [None]
